FAERS Safety Report 4539390-8 (Version None)
Quarter: 2004Q4

REPORT INFORMATION
  Report Type: 
  Country: None (occurrence: None)
  Receive Date: 20041228
  Receipt Date: 20041203
  Transmission Date: 20050328
  Serious: Yes (Hospitalization)
  Sender: FDA-Public Use
  Company Number: PHNU2004DE04064

PATIENT
  Age: 58 Year
  Sex: Female
  Weight: 58 kg

DRUGS (4)
  1. ZOMETA [Suspect]
     Indication: METASTASES TO BONE
     Dosage: 4 MG, ONCE/SINGLE
     Route: 042
     Dates: start: 20041207, end: 20041207
  2. ZOMETA [Suspect]
     Dosage: 4 MG, ONCE/SINGLE
     Route: 042
     Dates: start: 20041109, end: 20041109
  3. ZOMETA [Suspect]
     Dosage: 4 MG, QMO
     Dates: start: 20031201
  4. ARIMIDEX [Concomitant]
     Indication: BREAST CANCER FEMALE
     Dosage: 1 MG, QD
     Route: 048
     Dates: start: 20031201

REACTIONS (7)
  - BLOOD CALCIUM DECREASED [None]
  - BLOOD PRESSURE DECREASED [None]
  - BLOOD PRESSURE IMMEASURABLE [None]
  - CIRCULATORY COLLAPSE [None]
  - FEELING ABNORMAL [None]
  - INFUSION RELATED REACTION [None]
  - LOSS OF CONSCIOUSNESS [None]
